FAERS Safety Report 17205563 (Version 1)
Quarter: 2019Q4

REPORT INFORMATION
  Report Type: Spontaneous
  Country: US (occurrence: US)
  Receive Date: 20191204
  Receipt Date: 20191204
  Transmission Date: 20200122
  Serious: No
  Sender: FDA-Public Use
  Company Number: None

PATIENT
  Age: 60 Year
  Sex: Female

DRUGS (1)
  1. CAPECITABINE TAB 500MG [Suspect]
     Active Substance: CAPECITABINE
     Dosage: ?          OTHER DOSE:0000;?
     Route: 048

REACTIONS (4)
  - Asthenia [None]
  - Dehydration [None]
  - Nausea [None]
  - Hypokalaemia [None]

NARRATIVE: CASE EVENT DATE: 20191204
